FAERS Safety Report 12205125 (Version 2)
Quarter: 2016Q2

REPORT INFORMATION
  Report Type: Spontaneous
  Country: US (occurrence: US)
  Receive Date: 20160323
  Receipt Date: 20160413
  Transmission Date: 20160815
  Serious: Yes (Other)
  Sender: FDA-Public Use
  Company Number: US-SIGMAPHARM LABORATORIES, LLC-2016SIG00007

PATIENT
  Age: 68 Year
  Sex: Female
  Weight: 72.56 kg

DRUGS (13)
  1. GABAPENTIN. [Concomitant]
     Active Substance: GABAPENTIN
  2. CHILDRENS BENADRYL ALLERGY [Suspect]
     Active Substance: DIPHENHYDRAMINE HYDROCHLORIDE
     Dosage: UNK
     Dates: start: 20160311
  3. ZANTAC [Concomitant]
     Active Substance: RANITIDINE HYDROCHLORIDE
  4. VERAPAMIL [Concomitant]
     Active Substance: VERAPAMIL HYDROCHLORIDE
  5. UNSPECIFIED INHALERS FOR ASTHMA [Concomitant]
     Dosage: UNK, AS NEEDED
  6. ^NEURO-IMMUNE STABILIZER CREAM FOR A METHYLATION DEFECT^ (UNSPECIFIED) [Concomitant]
     Dosage: UNK
     Route: 061
     Dates: start: 20160309
  7. UNSPECIFIED ALLERGY MEDICATION FOR HAY FEVER [Concomitant]
  8. LIOTHYRONINE SODIUM. [Suspect]
     Active Substance: LIOTHYRONINE SODIUM
     Indication: HYPOTHYROIDISM
     Dosage: 5 MCG, 1X/DAY
     Route: 048
     Dates: start: 20160309, end: 20160309
  9. VITAMIN B3 [Concomitant]
     Active Substance: NIACIN
     Dosage: TAKEN FOR SEVERAL MONTHS
  10. LIOTHYRONINE SODIUM. [Suspect]
     Active Substance: LIOTHYRONINE SODIUM
     Dosage: 5 MCG, 1X/DAY
     Route: 048
     Dates: start: 20160311, end: 20160311
  11. NITROGLYCERIN. [Concomitant]
     Active Substance: NITROGLYCERIN
  12. NEXIUM [Concomitant]
     Active Substance: ESOMEPRAZOLE MAGNESIUM
  13. UNSPECIFIED NEBULIZERS FOR ASTHMA [Concomitant]
     Dosage: UNK, AS NEEDED

REACTIONS (2)
  - Food allergy [Recovered/Resolved]
  - Feeling abnormal [Recovered/Resolved]

NARRATIVE: CASE EVENT DATE: 201603
